FAERS Safety Report 23798791 (Version 1)
Quarter: 2024Q2

REPORT INFORMATION
  Report Type: Spontaneous
  Country: CZ (occurrence: CZ)
  Receive Date: 20240430
  Receipt Date: 20240430
  Transmission Date: 20240715
  Serious: Yes (Hospitalization, Disabling, Other)
  Sender: FDA-Public Use
  Company Number: None

PATIENT
  Age: 54 Year
  Sex: Female
  Weight: 70 kg

DRUGS (4)
  1. KEYTRUDA [Suspect]
     Active Substance: PEMBROLIZUMAB
     Indication: Triple negative breast cancer
     Dosage: 200 MG, ADMINISTERED IN 3-WEEK CYCLES, A TOTAL OF 12 APPLICATIONS ADMINISTERED
     Route: 042
     Dates: start: 20230424, end: 20231227
  2. PACLITAXEL [Suspect]
     Active Substance: PACLITAXEL
     Indication: Triple negative breast cancer
     Dosage: 135 MILLIGRAM, QW
     Route: 042
     Dates: start: 20230417, end: 20231106
  3. OMEPRAZOLE [Concomitant]
     Active Substance: OMEPRAZOLE
     Dosage: 1-0-0
  4. ATORVASTATIN CALCIUM [Concomitant]
     Active Substance: ATORVASTATIN CALCIUM
     Indication: Hyperlipidaemia
     Dosage: 0-0-1

REACTIONS (2)
  - Immune-mediated neuropathy [Recovered/Resolved with Sequelae]
  - Immune-mediated arthritis [Recovered/Resolved with Sequelae]

NARRATIVE: CASE EVENT DATE: 20240101
